FAERS Safety Report 4602259-4 (Version None)
Quarter: 2005Q1

REPORT INFORMATION
  Report Type: 
  Country: None (occurrence: None)
  Receive Date: 20050201
  Receipt Date: 20040922
  Transmission Date: 20050727
  Serious: Yes (Other)
  Sender: FDA-Public Use
  Company Number: 200420591BWH

PATIENT
  Sex: 0

DRUGS (2)
  1. AVELOX [Suspect]
     Dosage: 400 MG, TOTAL DAILY, ORAL; A FEW MONTHS
     Route: 048
  2. FULL HIV REGIMEN [Concomitant]

REACTIONS (1)
  - NEUTROPENIA [None]
